FAERS Safety Report 5589476-4 (Version None)
Quarter: 2008Q1

REPORT INFORMATION
  Report Type: 
  Country: None (occurrence: None)
  Receive Date: 20080110
  Receipt Date: 20080110
  Transmission Date: 20080703
  Serious: No
  Sender: FDA-Public Use
  Company Number: None

PATIENT
  Sex: Female

DRUGS (2)
  1. ZOLPIDEM [Suspect]
     Dosage: 10 MG HS
  2. LORAZEPAM [Suspect]
     Indication: INSOMNIA
     Dosage: 1-2 MG HS
     Dates: start: 20070101

REACTIONS (1)
  - DRUG INEFFECTIVE [None]
